FAERS Safety Report 6604035-X (Version None)
Quarter: 2010Q1

REPORT INFORMATION
  Report Type: 
  Country: None (occurrence: None)
  Receive Date: 20100226
  Receipt Date: 20090421
  Transmission Date: 20100710
  Serious: No
  Sender: FDA-Public Use
  Company Number: A0779928A

PATIENT
  Age: 35 Year
  Sex: Female

DRUGS (2)
  1. LAMICTAL CD [Suspect]
     Indication: BIPOLAR DISORDER
     Dosage: 50MG AT NIGHT
     Route: 048
     Dates: start: 20090401
  2. NO CONCURRENT MEDICATION [Concomitant]

REACTIONS (3)
  - LYMPHADENOPATHY [None]
  - RASH ERYTHEMATOUS [None]
  - URTICARIA [None]
